FAERS Safety Report 22622293 (Version 2)
Quarter: 2023Q2

REPORT INFORMATION
  Report Type: Spontaneous
  Country: US (occurrence: US)
  Receive Date: 20230620
  Receipt Date: 20230621
  Transmission Date: 20230721
  Serious: Yes (Hospitalization, Other)
  Sender: FDA-Public Use
  Company Number: US-ABBVIE-5296203

PATIENT
  Age: 60 Year
  Sex: Female

DRUGS (14)
  1. SKYRIZI [Suspect]
     Active Substance: RISANKIZUMAB-RZAA
     Indication: Psoriasis
     Route: 058
     Dates: start: 202211, end: 20230429
  2. LEVOTHYROXINE [Concomitant]
     Active Substance: LEVOTHYROXINE
     Indication: Product used for unknown indication
     Dosage: 75 MCG
     Dates: start: 20220721, end: 20230427
  3. OMEPRAZOLE [Concomitant]
     Active Substance: OMEPRAZOLE
     Indication: Dyspepsia
     Dosage: TAKE 1 CAPSULE DAILY FOR
     Dates: start: 20220721, end: 20230424
  4. OMEPRAZOLE [Concomitant]
     Active Substance: OMEPRAZOLE
     Indication: Dyspepsia
     Route: 065
     Dates: start: 20220721, end: 20230424
  5. METHOCARBAMOL [Concomitant]
     Active Substance: METHOCARBAMOL
     Indication: Product used for unknown indication
     Dosage: TAKE 1 TABLET BY MOUTH TWICE A DAY FOR 15 DAYS
     Dates: start: 20230310, end: 20230424
  6. METHOCARBAMOL [Concomitant]
     Active Substance: METHOCARBAMOL
     Indication: Product used for unknown indication
     Dates: start: 20230310, end: 20230424
  7. GABAPENTIN [Concomitant]
     Active Substance: GABAPENTIN
     Indication: Product used for unknown indication
     Route: 065
     Dates: start: 20230329, end: 20230424
  8. VENLAFAXINE [Concomitant]
     Active Substance: VENLAFAXINE HYDROCHLORIDE
     Indication: Product used for unknown indication
     Dosage: AKE 1 CAPSULE BYT MOUTH ONCE DAILY IN THE MORNING FOR HOT FLASHES
     Dates: start: 20220721, end: 20230507
  9. BENZONATATE [Concomitant]
     Active Substance: BENZONATATE
     Indication: Product used for unknown indication
     Dosage: 100 MG, ORAL, 3 TIMES DAILY PRN
     Dates: start: 20230429, end: 20230517
  10. ROPINIROLE [Concomitant]
     Active Substance: ROPINIROLE
     Indication: Product used for unknown indication
     Dosage: 0.25 MG, ORAL, NIGHTLY
     Dates: start: 20230323, end: 20230424
  11. NAPROXEN [Concomitant]
     Active Substance: NAPROXEN
     Indication: Product used for unknown indication
     Dates: start: 20230310, end: 20230424
  12. DICLOFENAC [Concomitant]
     Active Substance: DICLOFENAC
     Indication: Product used for unknown indication
     Dosage: PPLY TOPICALLY 2 GRAMS TO BOTH HANDS AND FEET 4 TIMESDAILY AS NEEDED
     Dates: start: 20220701
  13. METFORMIN [Concomitant]
     Active Substance: METFORMIN HYDROCHLORIDE
     Indication: Product used for unknown indication
     Dosage: 500 MG, ORAL, DAILY WITH BREAKFAST
     Dates: start: 20230217, end: 20230429
  14. SYNTHROID [Suspect]
     Active Substance: LEVOTHYROXINE SODIUM
     Indication: Product used for unknown indication
     Dosage: 75 MCG, ORAL, EVERY MORNING BEFORE BREAKFAST
     Route: 048
     Dates: start: 20220721, end: 20230427

REACTIONS (31)
  - Myelopathy [Unknown]
  - Gait disturbance [Unknown]
  - Wheezing [Unknown]
  - Psoriasis [Unknown]
  - Upper-airway cough syndrome [Unknown]
  - Back pain [Unknown]
  - Dyspepsia [Unknown]
  - Nasal congestion [Unknown]
  - Dysarthria [Unknown]
  - Weight decreased [Unknown]
  - Asthenia [Unknown]
  - Hypoaesthesia [Unknown]
  - Hypothyroidism [Unknown]
  - Intervertebral disc disorder [Unknown]
  - Blood pressure increased [Unknown]
  - Muscle contractions involuntary [Unknown]
  - Dyspnoea [Unknown]
  - Fall [Unknown]
  - Condition aggravated [Unknown]
  - Arthralgia [Unknown]
  - Memory impairment [Not Recovered/Not Resolved]
  - Gait disturbance [Unknown]
  - Asthenia [Unknown]
  - Dysarthria [Not Recovered/Not Resolved]
  - Confusional state [Unknown]
  - Intervertebral disc protrusion [Unknown]
  - Vertebral foraminal stenosis [Unknown]
  - Intervertebral disc degeneration [Unknown]
  - Intervertebral disc space narrowing [Unknown]
  - Spinal osteoarthritis [Unknown]
  - Facet joint syndrome [Unknown]

NARRATIVE: CASE EVENT DATE: 20230311
